FAERS Safety Report 10673968 (Version 1)
Quarter: 2014Q4

REPORT INFORMATION
  Report Type: Spontaneous
  Country: US (occurrence: None)
  Receive Date: 20141222
  Receipt Date: 20141222
  Transmission Date: 20150529
  Serious: No
  Sender: FDA-Public Use
  Company Number: 2014-00110

PATIENT
  Age: 43 Year
  Sex: Male
  Weight: 83.92 kg

DRUGS (1)
  1. ZICAM COLD REMEDY RAPIDMELTS [Suspect]
     Active Substance: ZINC ACETATE ANHYDROUS\ZINC GLUCONATE
     Indication: NASOPHARYNGITIS
     Route: 048
     Dates: start: 20141217

REACTIONS (3)
  - Ageusia [None]
  - Glossodynia [None]
  - Anosmia [None]

NARRATIVE: CASE EVENT DATE: 20141217
